FAERS Safety Report 7252927-3 (Version None)
Quarter: 2011Q1

REPORT INFORMATION
  Report Type: 
  Country: None (occurrence: None)
  Receive Date: 20110129
  Receipt Date: 20100312
  Transmission Date: 20110831
  Serious: No
  Sender: FDA-Public Use
  Company Number: US-ABBOTT-10P-163-0631871-00

PATIENT
  Sex: Female
  Weight: 65.376 kg

DRUGS (8)
  1. HUMIRA [Suspect]
     Indication: PHARYNGEAL DISORDER
     Dates: start: 20100301
  2. HUMIRA [Suspect]
     Indication: CROHN'S DISEASE
     Dates: start: 20090501, end: 20100301
  3. HUMIRA [Suspect]
     Indication: OESOPHAGEAL DISORDER
  4. PRILOSE (COMEPRAZOLE) [Concomitant]
     Indication: PRODUCT USED FOR UNKNOWN INDICATION
  5. HUMIRA [Suspect]
     Indication: GASTROINTESTINAL DISORDER
  6. PREDNISONE [Suspect]
     Indication: PRODUCT USED FOR UNKNOWN INDICATION
  7. PROZA [Concomitant]
     Indication: PRODUCT USED FOR UNKNOWN INDICATION
  8. NORTRIPTYLINE HYDROCHLORIDE [Concomitant]
     Indication: PRODUCT USED FOR UNKNOWN INDICATION

REACTIONS (2)
  - RESPIRATORY TRACT INFECTION [None]
  - OESOPHAGEAL PAIN [None]
